FAERS Safety Report 5672548-3 (Version None)
Quarter: 2008Q1

REPORT INFORMATION
  Report Type: 
  Country: None (occurrence: None)
  Receive Date: 20080317
  Receipt Date: 20080303
  Transmission Date: 20080703
  Serious: Yes (Hospitalization)
  Sender: FDA-Public Use
  Company Number: 2008BI002568

PATIENT
  Age: 48 Year
  Sex: Male

DRUGS (3)
  1. ZEVALIN [Suspect]
     Indication: B-CELL LYMPHOMA
     Dosage: 3.0 MCI; 1X; IV
     Route: 042
     Dates: start: 20040101, end: 20060201
  2. ZEVALIN [Suspect]
  3. RITUXIMAB [Concomitant]

REACTIONS (16)
  - ABDOMINAL DISCOMFORT [None]
  - ANAPHYLACTIC REACTION [None]
  - BLOOD PRESSURE INCREASED [None]
  - DEPRESSED LEVEL OF CONSCIOUSNESS [None]
  - DIZZINESS [None]
  - DRY MOUTH [None]
  - DYSPNOEA EXERTIONAL [None]
  - FEELING ABNORMAL [None]
  - HUMAN ANTI-MOUSE ANTIBODY POSITIVE [None]
  - HYPOTENSION [None]
  - HYPOVENTILATION [None]
  - LYMPHADENOPATHY [None]
  - MASS [None]
  - OEDEMA PERIPHERAL [None]
  - PULMONARY MASS [None]
  - URINARY INCONTINENCE [None]
